FAERS Safety Report 5013973-3 (Version None)
Quarter: 2006Q2

REPORT INFORMATION
  Report Type: 
  Country: None (occurrence: None)
  Receive Date: 20060525
  Receipt Date: 20060508
  Transmission Date: 20061013
  Serious: Yes (Hospitalization, Other)
  Sender: FDA-Public Use
  Company Number: US200605001794

PATIENT
  Sex: Female

DRUGS (2)
  1. ZYPREXA [Suspect]
     Indication: SCHIZOPHRENIA
     Dates: start: 20000101, end: 20040101
  2. XANAX [Concomitant]

REACTIONS (9)
  - ARTHRITIS [None]
  - CATARACT DIABETIC [None]
  - DIABETES MELLITUS NON-INSULIN-DEPENDENT [None]
  - DIABETIC NEUROPATHY [None]
  - HYPERTENSION [None]
  - MALAISE [None]
  - THROMBOSIS [None]
  - WEIGHT INCREASED [None]
  - WEIGHT LOSS POOR [None]
